FAERS Safety Report 9632085 (Version 2)
Quarter: 2013Q4

REPORT INFORMATION
  Report Type: Spontaneous
  Country: DK (occurrence: DK)
  Receive Date: 20131018
  Receipt Date: 20131126
  Transmission Date: 20140711
  Serious: Yes (Hospitalization, Disabling)
  Sender: FDA-Public Use
  Company Number: DK-ACTAVIS-2013-18907

PATIENT
  Age: 62 Year
  Sex: Female
  Weight: 92 kg

DRUGS (2)
  1. OXALIPLATIN (UNKNOWN) [Suspect]
     Indication: COLORECTAL CANCER
     Dosage: 250 MG, UNKNOWN
     Route: 042
     Dates: start: 20121114, end: 20130305
  2. XELODA [Suspect]
     Indication: COLORECTAL CANCER
     Dosage: 2000 MG, BID
     Route: 048
     Dates: start: 20121114, end: 20130416

REACTIONS (4)
  - Polymyositis [Recovering/Resolving]
  - Myalgia [Recovered/Resolved]
  - Muscular weakness [Recovering/Resolving]
  - Myopathy toxic [Recovering/Resolving]
